FAERS Safety Report 7786178-0 (Version None)
Quarter: 2011Q3

REPORT INFORMATION
  Report Type: 
  Country: None (occurrence: None)
  Receive Date: 20110929
  Receipt Date: 20110919
  Transmission Date: 20111222
  Serious: Yes (Other)
  Sender: FDA-Public Use
  Company Number: US-GENZYME-CAMP-1000621

PATIENT
  Sex: Female
  Weight: 63.5 kg

DRUGS (22)
  1. ALEMTUZUMAB [Suspect]
     Dosage: 24 MG, QDX3
     Route: 042
     Dates: start: 20090330, end: 20090401
  2. METHYLPREDNISOLONE [Concomitant]
     Indication: MULTIPLE SCLEROSIS
     Dosage: 1 G, QD
     Route: 042
     Dates: start: 20090327, end: 20090327
  3. CALCIUM CARBONATE [Concomitant]
     Indication: PRODUCT USED FOR UNKNOWN INDICATION
     Dosage: 1500 MG, QD
     Route: 048
     Dates: start: 20020101
  4. LEVAQUIN [Concomitant]
     Dosage: 500 MG, QD
     Route: 048
     Dates: start: 20100226, end: 20100304
  5. LYRICA [Concomitant]
     Indication: PAIN
     Dosage: 50-75 MG, PRN
     Route: 048
     Dates: start: 20100309
  6. METHYLPREDNISOLONE [Concomitant]
     Dosage: 1 G, QDX3
     Route: 042
     Dates: start: 20100331, end: 20100402
  7. MACROBID [Concomitant]
     Indication: URINARY TRACT INFECTION
     Dosage: 100 MG, BID
     Route: 048
     Dates: start: 20091113
  8. ACYCLOVIR [Concomitant]
     Indication: PRODUCT USED FOR UNKNOWN INDICATION
  9. ALEMTUZUMAB [Suspect]
     Indication: MULTIPLE SCLEROSIS
     Dosage: 24 MG, QD
     Route: 042
     Dates: start: 20090327, end: 20090327
  10. ALEMTUZUMAB [Suspect]
     Dosage: 24 MG, QD
     Route: 042
     Dates: start: 20090403, end: 20090403
  11. YAZ [Concomitant]
     Indication: CONTRACEPTION
     Dosage: UNK UNK, QD
     Route: 048
     Dates: start: 20090323
  12. LEVAQUIN [Concomitant]
     Indication: RESPIRATORY TRACT INFECTION
     Dosage: 500 MG, QD
     Route: 048
     Dates: start: 20091116, end: 20091126
  13. ROBITUSSIN DM [Concomitant]
     Indication: COUGH
     Dosage: 5 ML, PRN
     Route: 048
     Dates: start: 20091116, end: 20091126
  14. SOLU-MEDROL [Concomitant]
     Indication: MULTIPLE SCLEROSIS RELAPSE
     Dosage: 1 G, QD
     Route: 042
     Dates: start: 20100120, end: 20100122
  15. ALEMTUZUMAB [Suspect]
     Dosage: 24 MG, QDX3
     Route: 042
     Dates: start: 20100331, end: 20100402
  16. VITAMIN D [Concomitant]
     Indication: VITAMIN SUPPLEMENTATION
     Dosage: 1000 IU, QD
     Route: 048
     Dates: start: 20080301
  17. KEFLEX [Concomitant]
     Indication: URINARY TRACT INFECTION
     Dosage: 500 MG, BID
     Route: 048
     Dates: start: 20090818, end: 20091116
  18. SUDAFED 12 HOUR [Concomitant]
     Indication: RESPIRATORY TRACT CONGESTION
     Dosage: 1 TABLET, PRN
     Route: 048
     Dates: start: 20091110, end: 20091113
  19. MUCINEX D [Concomitant]
     Indication: RESPIRATORY TRACT CONGESTION
     Dosage: 1 TABLET, PRN
     Route: 048
     Dates: start: 20091116, end: 20091126
  20. METHYLPREDNISOLONE [Concomitant]
     Dosage: 1 G, QD
     Route: 042
     Dates: start: 20090330, end: 20090331
  21. NITROFURANTOIN [Concomitant]
     Indication: PRODUCT USED FOR UNKNOWN INDICATION
     Dosage: UNK
  22. MULTI-VITAMIN [Concomitant]
     Indication: MEDICAL DIET
     Dosage: 1 TABLET, QD
     Route: 048
     Dates: start: 20040101

REACTIONS (2)
  - CERVICAL DYSPLASIA [None]
  - GENITOURINARY TRACT NEOPLASM [None]
